FAERS Safety Report 8226718-0 (Version None)
Quarter: 2012Q1

REPORT INFORMATION
  Report Type: 
  Country: None (occurrence: None)
  Receive Date: 20120322
  Receipt Date: 20120314
  Transmission Date: 20120608
  Serious: Yes (Hospitalization)
  Sender: FDA-Public Use
  Company Number: IT-BAYER-2012-025250

PATIENT
  Age: 34 Year
  Sex: Male
  Weight: 81.6 kg

DRUGS (2)
  1. EVEROLIMUS [Suspect]
     Indication: OSTEOSARCOMA METASTATIC
     Dosage: 5 MG, QD
     Dates: start: 20120105, end: 20120229
  2. SORAFENIB (RAF KINASE INHIBITOR) [Suspect]
     Indication: OSTEOSARCOMA METASTATIC
     Dosage: 400 MG, BID
     Dates: start: 20120105, end: 20120229

REACTIONS (1)
  - PNEUMOTHORAX [None]
